FAERS Safety Report 13585928 (Version 1)
Quarter: 2017Q2

REPORT INFORMATION
  Report Type: Spontaneous
  Country: US (occurrence: US)
  Receive Date: 20170526
  Receipt Date: 20170526
  Transmission Date: 20170830
  Serious: Yes (Life-Threatening)
  Sender: FDA-Public Use
  Company Number: US-FRESENIUS KABI-FK201704197

PATIENT
  Age: 57 Year
  Sex: Female

DRUGS (3)
  1. CEFOXITIN [Suspect]
     Active Substance: CEFOXITIN SODIUM
     Indication: COLITIS
     Route: 065
  2. METRONIDAZOLE (MANUFACTURER UNKNOWN) [Suspect]
     Active Substance: METRONIDAZOLE
     Indication: COLITIS
     Route: 065
  3. MORPHINE (MANUFACTURER UNKNOWN) [Suspect]
     Active Substance: MORPHINE
     Indication: COLITIS
     Route: 065

REACTIONS (3)
  - Systemic mastocytosis [Unknown]
  - Cardiac arrest [Unknown]
  - Anaphylactic reaction [Unknown]
